FAERS Safety Report 14164718 (Version 2)
Quarter: 2017Q4

REPORT INFORMATION
  Report Type: Spontaneous
  Country: US (occurrence: US)
  Receive Date: 20171107
  Receipt Date: 20171206
  Transmission Date: 20180321
  Serious: No
  Sender: FDA-Public Use
  Company Number: US-PFIZER INC-2017477683

PATIENT
  Age: 75 Year
  Sex: Female

DRUGS (9)
  1. IBRANCE [Suspect]
     Active Substance: PALBOCICLIB
     Indication: OESTROGEN RECEPTOR POSITIVE BREAST CANCER
     Dosage: 75 MG, CYCLIC [TAKE ONE CAPSULE BY MOUTH ONCE DAILY WITH FOOD FOR 21 DAYS, THEN 7 DAYS OFF]
     Route: 048
     Dates: start: 20171001
  2. CALCIUM/MELATONIN/PYRIDOXINE HYDROCHLORIDE [Concomitant]
     Dosage: 10 MG, UNK
  3. GABAPENTIN. [Concomitant]
     Active Substance: GABAPENTIN
     Dosage: 100 MG, UNK
  4. CRANBERRY. [Concomitant]
     Active Substance: CRANBERRY
     Dosage: 450 MG, UNK
  5. NAPROXEN. [Concomitant]
     Active Substance: NAPROXEN
     Dosage: 375 MG, UNK
  6. TRAMADOL HCL [Concomitant]
     Active Substance: TRAMADOL HYDROCHLORIDE
     Dosage: 50 MG, UNK
  7. VITAMIN D [Concomitant]
     Active Substance: CHOLECALCIFEROL
     Dosage: 1000 IU, UNK
  8. CYCLOBENZAPRIN [Concomitant]
     Active Substance: CYCLOBENZAPRINE
     Dosage: 10 MG, UNK
  9. FLECAINIDE [Concomitant]
     Active Substance: FLECAINIDE
     Dosage: 50 MG, UNK

REACTIONS (2)
  - Insomnia [Not Recovered/Not Resolved]
  - Nausea [Not Recovered/Not Resolved]

NARRATIVE: CASE EVENT DATE: 2017
